FAERS Safety Report 25969043 (Version 1)
Quarter: 2025Q4

REPORT INFORMATION
  Report Type: Spontaneous
  Country: EU (occurrence: EU)
  Receive Date: 20251028
  Receipt Date: 20251028
  Transmission Date: 20260119
  Serious: Yes (Hospitalization)
  Sender: CHEPLAPHARM
  Company Number: None

PATIENT
  Age: 24 Year
  Sex: Male

DRUGS (15)
  1. CLONAZEPAM [Suspect]
     Active Substance: CLONAZEPAM
     Dates: start: 202401
  2. CLONAZEPAM [Suspect]
     Active Substance: CLONAZEPAM
     Dates: start: 20250705
  3. CANNABIS SATIVA SUBSP. INDICA TOP [Suspect]
     Active Substance: CANNABIS SATIVA SUBSP. INDICA TOP
     Dosage: 3 JOINTS / DAY
     Route: 055
     Dates: start: 2018
  4. ADDERALL [Suspect]
     Active Substance: AMPHETAMINE ASPARTATE\AMPHETAMINE SULFATE\DEXTROAMPHETAMINE SACCHARATE\DEXTROAMPHETAMINE SULFATE
     Dosage: 30MG
     Dates: start: 202504
  5. HEROIN [Suspect]
     Active Substance: DIAMORPHINE
  6. ALPRAZOLAM [Suspect]
     Active Substance: ALPRAZOLAM
     Indication: Substance use
     Dates: start: 202402, end: 202408
  7. ALPRAZOLAM [Suspect]
     Active Substance: ALPRAZOLAM
     Indication: Anxiety disorder
     Dates: start: 202402, end: 202408
  8. PRAZEPAM [Suspect]
     Active Substance: PRAZEPAM
     Dates: start: 202408, end: 202410
  9. COCAINE [Suspect]
     Active Substance: COCAINE
     Indication: Mania
     Dates: start: 2024
  10. COCAINE [Suspect]
     Active Substance: COCAINE
     Indication: Mania
     Dosage: COCAINE USE AT LEAST ONCE ON JANUARY 22, 2025
     Dates: start: 20250122
  11. METHYLPHENIDATE HYDROCHLORIDE [Suspect]
     Active Substance: METHYLPHENIDATE HYDROCHLORIDE
     Dosage: PURCHASE OF RITALIN (INTERNET) ON MARCH 18, 2025
     Dates: start: 2025
  12. METHAMPHETAMINE [Suspect]
     Active Substance: METHAMPHETAMINE
     Indication: Mania
     Dates: start: 2024
  13. KETAMINE [Suspect]
     Active Substance: KETAMINE
     Dates: start: 2025
  14. FLUOXETINE HYDROCHLORIDE [Suspect]
     Active Substance: FLUOXETINE HYDROCHLORIDE
     Dates: start: 202502
  15. FLUBROMAZOLAM [Suspect]
     Active Substance: FLUBROMAZOLAM
     Dates: start: 202502

REACTIONS (6)
  - Drug dependence [Not Recovered/Not Resolved]
  - Suicide attempt [Recovered/Resolved]
  - Bipolar I disorder [Not Recovered/Not Resolved]
  - Depression [Not Recovered/Not Resolved]
  - Drug withdrawal syndrome [Unknown]
  - Prescription drug used without a prescription [Unknown]

NARRATIVE: CASE EVENT DATE: 20240101
